FAERS Safety Report 18537696 (Version 2)
Quarter: 2021Q1

REPORT INFORMATION
  Report Type: Spontaneous
  Country: US (occurrence: US)
  Receive Date: 20201124
  Receipt Date: 20210224
  Transmission Date: 20210419
  Serious: No
  Sender: FDA-Public Use
  Company Number: US-BIOVITRUM-2020US6658

PATIENT
  Sex: Male
  Weight: 11 kg

DRUGS (8)
  1. SYNAGIS [Suspect]
     Active Substance: PALIVIZUMAB
     Indication: GASTROSTOMY
  2. SYNAGIS [Suspect]
     Active Substance: PALIVIZUMAB
     Indication: LOW BIRTH WEIGHT BABY
  3. EPINEPHRINE HCL [Concomitant]
     Active Substance: EPINEPHRINE
  4. SYNAGIS [Suspect]
     Active Substance: PALIVIZUMAB
     Indication: PREMATURE BABY
  5. POLY?VI?SOL 750?35/ML DROPS [Concomitant]
  6. SPIRONOLACTONE 100 % POWDER [Concomitant]
  7. SYNAGIS [Suspect]
     Active Substance: PALIVIZUMAB
     Indication: BRONCHOPULMONARY DYSPLASIA
     Dosage: SYNAGIS 50MG/0.5ML VL LIQUID
     Route: 030
  8. SYNAGIS [Suspect]
     Active Substance: PALIVIZUMAB
     Indication: RETINOPATHY OF PREMATURITY

REACTIONS (5)
  - Pyrexia [Recovered/Resolved]
  - Nasopharyngitis [Recovering/Resolving]
  - Off label use [Unknown]
  - Weight decreased [Unknown]
  - Nasal congestion [Recovering/Resolving]
